FAERS Safety Report 6625998-2 (Version None)
Quarter: 2010Q1

REPORT INFORMATION
  Report Type: 
  Country: None (occurrence: None)
  Receive Date: 20100305
  Receipt Date: 20100218
  Transmission Date: 20100710
  Serious: Yes (Hospitalization)
  Sender: FDA-Public Use
  Company Number: PR-000029

PATIENT
  Sex: Female
  Weight: 79.3795 kg

DRUGS (1)
  1. KUVAN [Suspect]
     Indication: PHENYLKETONURIA
     Dosage: 10 TABLETS DAILY, ORAL
     Route: 048
     Dates: start: 20090601

REACTIONS (6)
  - CAESAREAN SECTION [None]
  - DRUG EXPOSURE DURING PREGNANCY [None]
  - INCISION SITE ABSCESS [None]
  - INCISION SITE INFECTION [None]
  - PREGNANCY [None]
  - TREATMENT NONCOMPLIANCE [None]
